FAERS Safety Report 5951044-X (Version None)
Quarter: 2008Q4

REPORT INFORMATION
  Report Type: 
  Country: None (occurrence: None)
  Receive Date: 20081110
  Receipt Date: 20081030
  Transmission Date: 20090506
  Serious: Yes (Hospitalization, Other)
  Sender: FDA-Public Use
  Company Number: TCI2008A04894

PATIENT
  Age: 51 Year
  Sex: Female

DRUGS (7)
  1. ACTOS [Suspect]
     Indication: DIABETES MELLITUS
     Dosage: 15 MG (15 MG, 1 IN 1 D)
     Route: 048
     Dates: start: 20080908, end: 20080910
  2. AMLODIPINE BESYLATE [Concomitant]
  3. MUCODYNE (CARBOCISTEINE) [Concomitant]
  4. MEDICON (DEXTROMENTHORPHAN HYDROBROMIDE) [Concomitant]
  5. BISOLVON (BROMHEXINE HYDROCHLORIDE) [Concomitant]
  6. LEVOFLOXACIN [Concomitant]
  7. O-SUGI KAMISHOUYOUSAN (HERBAL EXTRACT NOS) [Concomitant]

REACTIONS (8)
  - BACTERIAL INFECTION [None]
  - CHEST X-RAY ABNORMAL [None]
  - COMPUTERISED TOMOGRAM THORAX ABNORMAL [None]
  - HEADACHE [None]
  - HEART RATE INCREASED [None]
  - HYPERTENSION [None]
  - INTERSTITIAL LUNG DISEASE [None]
  - PULMONARY FUNCTION TEST ABNORMAL [None]
